FAERS Safety Report 4378581-6 (Version None)
Quarter: 2004Q2

REPORT INFORMATION
  Report Type: 
  Country: None (occurrence: None)
  Receive Date: 20040609
  Receipt Date: 20040525
  Transmission Date: 20050107
  Serious: Yes (Hospitalization)
  Sender: FDA-Public Use
  Company Number: SP00280

PATIENT
  Age: 44 Year
  Sex: Male

DRUGS (1)
  1. COLAZAL ( 750 MILLIGRAM, CAPSULES) [Suspect]
     Indication: COLITIS ULCERATIVE
     Dosage: 6.25 G/DAY, ORAL
     Route: 048
     Dates: start: 20030801

REACTIONS (4)
  - BLOOD GASES ABNORMAL [None]
  - EOSINOPHILIA [None]
  - PNEUMONIA [None]
  - WHITE BLOOD CELL COUNT INCREASED [None]
